FAERS Safety Report 12141949 (Version 1)
Quarter: 2016Q1

REPORT INFORMATION
  Report Type: Spontaneous
  Country: DE (occurrence: DE)
  Receive Date: 20160303
  Receipt Date: 20160303
  Transmission Date: 20160526
  Serious: Yes (Congenital Anomaly)
  Sender: FDA-Public Use
  Company Number: GXKR2016DE001109

PATIENT

DRUGS (5)
  1. TAVOR (LORAZEPAM) [Concomitant]
     Active Substance: LORAZEPAM
     Indication: PANIC ATTACK
     Dosage: 1 MG/D ON DEMAND, ABOUT 10 DOSES, GW. 4.1-8.
     Route: 064
  2. LAVENDER OIL [Concomitant]
     Active Substance: LAVENDER OIL
     Indication: SELF-MEDICATION
     Dosage: 80 MG/D, GW 0.-6.
     Route: 064
  3. FOLIO FORTE [Concomitant]
     Active Substance: FOLIC ACID\VITAMINS
     Indication: PROPHYLAXIS OF NEURAL TUBE DEFECT
     Dosage: 0.8 MG/D, GW. 0-39.2.
     Route: 064
     Dates: start: 20141214, end: 20150915
  4. CITALOPRAM [Suspect]
     Active Substance: CITALOPRAM HYDROBROMIDE
     Indication: DEPRESSION
     Dosage: 20 [MG/D ]/ FROM GW 30 REDUCTION TO 10MG/D
     Route: 064
     Dates: start: 20141214, end: 20150915
  5. IBUPROFEN. [Concomitant]
     Active Substance: IBUPROFEN
     Indication: HEADACHE
     Dosage: DOSAGE UNKNOWN, GW. 19-20.
     Route: 064

REACTIONS (3)
  - Right aortic arch [Not Recovered/Not Resolved]
  - Atrial septal defect [Not Recovered/Not Resolved]
  - Haemangioma [Not Recovered/Not Resolved]

NARRATIVE: CASE EVENT DATE: 20150915
